FAERS Safety Report 6234117-6 (Version None)
Quarter: 2009Q2

REPORT INFORMATION
  Report Type: 
  Country: None (occurrence: None)
  Receive Date: 20090618
  Receipt Date: 20090610
  Transmission Date: 20091009
  Serious: Yes (Other)
  Sender: FDA-Public Use
  Company Number: US-BAYER-US-2007-014411

PATIENT
  Age: 58 Year
  Sex: Female
  Weight: 68 kg

DRUGS (15)
  1. CLIMARA [Suspect]
     Dosage: .05 MG/D, CONT
     Route: 062
     Dates: start: 19961104
  2. PREMARIN [Suspect]
     Indication: MENOPAUSAL SYMPTOMS
     Dosage: 1.25 MG,  DAY 1-25 [DAILY DOSE: 1.25 MG]
     Route: 048
     Dates: start: 19940728
  3. PREMARIN [Suspect]
     Dosage: .9 MG, DAY 1-25
     Dates: start: 19970211
  4. CYCRIN [Suspect]
  5. PROVERA [Suspect]
     Indication: MENOPAUSAL SYMPTOMS
     Dosage: 5 MG, DAY 16-25
     Route: 048
     Dates: start: 19940728
  6. PROVERA [Suspect]
     Dosage: 2.5 MG, DAY 16-25
     Dates: start: 19970211
  7. PROVERA [Suspect]
     Dosage: UNIT DOSE: 2.5 MG
     Dates: start: 19961104, end: 19970211
  8. PREMPRO [Suspect]
     Indication: MENOPAUSAL SYMPTOMS
     Dosage: UNK
     Dates: start: 19981111, end: 20020710
  9. PREMPRO [Suspect]
     Dosage: UNK
     Dates: start: 19960723
  10. LIPITOR [Concomitant]
     Indication: BLOOD CHOLESTEROL ABNORMAL
     Dosage: UNIT DOSE: 20 MG
     Dates: start: 19900101
  11. LEXAPRO [Concomitant]
     Indication: DEPRESSION
     Dosage: 2 TABS IN AM
     Route: 048
     Dates: start: 20050101
  12. WELLBUTRIN [Concomitant]
     Indication: DEPRESSION
     Dosage: UNK, UNK
     Dates: start: 20060101
  13. CLEOCIN [Concomitant]
     Indication: CERVICITIS
     Dosage: UNK, UNK
     Dates: start: 19930601
  14. UNKNOWN DRUG [Concomitant]
     Indication: DEPRESSION
     Dosage: IN AM
     Dates: start: 20080401
  15. WELLBUTRIN XL [Concomitant]
     Indication: MAJOR DEPRESSION
     Dosage: IN AM
     Route: 048
     Dates: start: 20070402

REACTIONS (1)
  - BREAST CANCER FEMALE [None]
